FAERS Safety Report 6237208-9 (Version None)
Quarter: 2009Q2

REPORT INFORMATION
  Report Type: 
  Country: None (occurrence: None)
  Receive Date: 20090619
  Receipt Date: 20090610
  Transmission Date: 20091009
  Serious: Yes (Death)
  Sender: FDA-Public Use
  Company Number: FR-BRISTOL-MYERS SQUIBB COMPANY-14615207

PATIENT
  Age: 77 Year
  Sex: Female
  Weight: 70 kg

DRUGS (2)
  1. ERBITUX [Suspect]
     Indication: TONSIL CANCER
     Route: 042
     Dates: start: 20090311, end: 20090325
  2. RADIOTHERAPY [Suspect]
     Indication: TONSIL CANCER
     Dates: start: 20090311, end: 20090325

REACTIONS (1)
  - INTERSTITIAL LUNG DISEASE [None]
